FAERS Safety Report 24548660 (Version 6)
Quarter: 2025Q3

REPORT INFORMATION
  Report Type: Spontaneous
  Country: US (occurrence: US)
  Receive Date: 20241025
  Receipt Date: 20250904
  Transmission Date: 20251021
  Serious: Yes (Other)
  Sender: TAKEDA
  Company Number: US-TAKEDA-2024TUS106793

PATIENT
  Sex: Female
  Weight: 64 kg

DRUGS (8)
  1. LISDEXAMFETAMINE DIMESYLATE [Suspect]
     Active Substance: LISDEXAMFETAMINE DIMESYLATE
     Indication: Attention deficit hyperactivity disorder
  2. LISDEXAMFETAMINE DIMESYLATE [Suspect]
     Active Substance: LISDEXAMFETAMINE DIMESYLATE
     Indication: Binge eating
  3. VYVANSE [Suspect]
     Active Substance: LISDEXAMFETAMINE DIMESYLATE
     Indication: Attention deficit hyperactivity disorder
     Dosage: 70 MILLIGRAM, QD
     Dates: start: 2018
  4. VYVANSE [Suspect]
     Active Substance: LISDEXAMFETAMINE DIMESYLATE
     Indication: Binge eating
  5. VYVANSE [Suspect]
     Active Substance: LISDEXAMFETAMINE DIMESYLATE
  6. LURASIDONE [Concomitant]
     Active Substance: LURASIDONE
  7. TOPIRAMATE [Concomitant]
     Active Substance: TOPIRAMATE
  8. BUPROPION [Concomitant]
     Active Substance: BUPROPION

REACTIONS (9)
  - Intestinal obstruction [Unknown]
  - Abdominal distension [Unknown]
  - Product dispensing error [Unknown]
  - Exposure to toxic agent [Unknown]
  - Product tampering [Unknown]
  - Illness [Unknown]
  - Product prescribing issue [Unknown]
  - Amphetamines negative [Unknown]
  - Product packaging quantity issue [Unknown]

NARRATIVE: CASE EVENT DATE: 20210101
